FAERS Safety Report 22665194 (Version 2)
Quarter: 2023Q4

REPORT INFORMATION
  Report Type: Spontaneous
  Country: FR (occurrence: FR)
  Receive Date: 20230703
  Receipt Date: 20231016
  Transmission Date: 20240110
  Serious: Yes (Life-Threatening)
  Sender: FDA-Public Use
  Company Number: FR-AFSSAPS-PV2023000132

PATIENT
  Age: 16 Year
  Sex: Female
  Weight: 55 kg

DRUGS (3)
  1. VENLAFAXINE [Suspect]
     Active Substance: VENLAFAXINE HYDROCHLORIDE
     Indication: Intentional overdose
     Dosage: 375 MILLIGRAM, IN TOTAL, 5 CPS DE 75 MG
     Route: 048
     Dates: start: 20210831, end: 20210831
  2. ABILIFY [Suspect]
     Active Substance: ARIPIPRAZOLE
     Indication: Intentional overdose
     Dosage: 10 MILLIGRAM, IN TOTAL, 2 TABS OF 5 MG
     Route: 048
     Dates: start: 20210831, end: 20210831
  3. ALPRAZOLAM [Suspect]
     Active Substance: ALPRAZOLAM
     Indication: Intentional overdose
     Dosage: 1.25 MILLIGRAM, IN TOTAL, 5 TABLETS OF 0.25 MG
     Route: 048
     Dates: start: 20210831, end: 20210831

REACTIONS (3)
  - Intentional overdose [Recovered/Resolved]
  - Myoclonus [Unknown]
  - Somnolence [Unknown]

NARRATIVE: CASE EVENT DATE: 20210831
